FAERS Safety Report 10025588 (Version 1)
Quarter: 2014Q1

REPORT INFORMATION
  Report Type: Spontaneous
  Country: US (occurrence: US)
  Receive Date: 20140320
  Receipt Date: 20140320
  Transmission Date: 20141002
  Serious: No
  Sender: FDA-Public Use
  Company Number: US-TEVA-470321USA

PATIENT
  Sex: Female
  Weight: 44.49 kg

DRUGS (1)
  1. PLAN B ONE-STEP [Suspect]
     Indication: POST COITAL CONTRACEPTION
     Dosage: 1.5 MILLIGRAM DAILY;
     Route: 048
     Dates: start: 2006, end: 2006

REACTIONS (2)
  - Menstruation irregular [Recovered/Resolved]
  - Fatigue [Recovered/Resolved]
